FAERS Safety Report 13359969 (Version 1)
Quarter: 2017Q1

REPORT INFORMATION
  Report Type: Spontaneous
  Country: IT (occurrence: IT)
  Receive Date: 20170322
  Receipt Date: 20170322
  Transmission Date: 20170429
  Serious: Yes (Death, Hospitalization)
  Sender: FDA-Public Use
  Company Number: IT-OTSUKA-2017_006567

PATIENT
  Age: 79 Year
  Sex: Female

DRUGS (1)
  1. DACOGEN [Suspect]
     Active Substance: DECITABINE
     Indication: LEUKAEMIA
     Dosage: UNK
     Route: 042
     Dates: end: 20170222

REACTIONS (2)
  - Hyperpyrexia [Fatal]
  - Decreased appetite [Fatal]

NARRATIVE: CASE EVENT DATE: 20170223
